FAERS Safety Report 8418330-5 (Version None)
Quarter: 2012Q2

REPORT INFORMATION
  Report Type: 
  Country: None (occurrence: None)
  Receive Date: 20120607
  Receipt Date: 20120531
  Transmission Date: 20120825
  Serious: Yes (Hospitalization)
  Sender: FDA-Public Use
  Company Number: US-NOVOPROD-352895

PATIENT
  Age: 49 Year
  Sex: Male
  Weight: 74.83 kg

DRUGS (3)
  1. NEURONTIN [Suspect]
     Indication: NEURALGIA
     Dosage: 300 MG, THREE TIMES A DAY
     Route: 048
     Dates: start: 20100101
  2. LANTUS [Suspect]
     Indication: DIABETES MELLITUS
     Dosage: 35 U, UNK
     Route: 058
     Dates: start: 20100101
  3. NOVOLOG [Suspect]
     Indication: DIABETES MELLITUS
     Dosage: 8 U, THREE TIMES A DAY
     Route: 058
     Dates: start: 20100101

REACTIONS (3)
  - PAIN [None]
  - BLOOD GLUCOSE INCREASED [None]
  - BLOOD PRESSURE ABNORMAL [None]
